FAERS Safety Report 9492174 (Version 1)
Quarter: 2013Q3

REPORT INFORMATION
  Report Type: Spontaneous
  Country: US (occurrence: US)
  Receive Date: 20130830
  Receipt Date: 20130830
  Transmission Date: 20140515
  Serious: Yes (Hospitalization)
  Sender: FDA-Public Use
  Company Number: US-GLAXOSMITHKLINE-A1039607A

PATIENT
  Sex: 0

DRUGS (2)
  1. BENLYSTA [Suspect]
     Indication: PRODUCT USED FOR UNKNOWN INDICATION
     Route: 065
  2. PREDNISONE [Suspect]
     Indication: PRODUCT USED FOR UNKNOWN INDICATION

REACTIONS (4)
  - Renal failure [Recovering/Resolving]
  - Blood creatinine abnormal [Recovering/Resolving]
  - Blood cortisol decreased [Recovering/Resolving]
  - Therapeutic response decreased [Unknown]
